FAERS Safety Report 5075426-6 (Version None)
Quarter: 2006Q3

REPORT INFORMATION
  Report Type: 
  Country: None (occurrence: None)
  Receive Date: 20060807
  Receipt Date: 20060807
  Transmission Date: 20061208
  Serious: Yes (Other)
  Sender: FDA-Public Use
  Company Number: None

PATIENT
  Age: 48 Year
  Sex: Male

DRUGS (2)
  1. CIALIS [Suspect]
     Indication: ERECTILE DYSFUNCTION
     Dosage: 10.0 MILLGRAM(S); 1;1
  2. LEVITRA [Suspect]
     Dosage: 20.0 MILLIGRAM(S); 1;1

REACTIONS (2)
  - HEADACHE [None]
  - NASAL CONGESTION [None]
